FAERS Safety Report 21695779 (Version 3)
Quarter: 2023Q1

REPORT INFORMATION
  Report Type: Report from Study
  Country: IT (occurrence: IT)
  Receive Date: 20221207
  Receipt Date: 20230112
  Transmission Date: 20230418
  Serious: Yes (Hospitalization)
  Sender: FDA-Public Use
  Company Number: IT-PFIZER INC-PV202200115472

PATIENT
  Age: 36 Year
  Sex: Female

DRUGS (2)
  1. CYTOTEC [Suspect]
     Active Substance: MISOPROSTOL
     Dosage: 200 UG, 4X/DAY
     Route: 067
     Dates: start: 20181227, end: 20181227
  2. BUTYLSCOPOLAMINE BROMIDE [Concomitant]
     Active Substance: BUTYLSCOPOLAMINE BROMIDE
     Indication: Pelvic pain
     Dosage: UNK
     Route: 030
     Dates: start: 20181226, end: 20181226

REACTIONS (1)
  - Pelvic pain [Recovering/Resolving]

NARRATIVE: CASE EVENT DATE: 20181228
